FAERS Safety Report 7036294-6 (Version None)
Quarter: 2010Q4

REPORT INFORMATION
  Report Type: 
  Country: None (occurrence: None)
  Receive Date: 20101008
  Receipt Date: 20101005
  Transmission Date: 20110411
  Serious: Yes (Death, Hospitalization, Other)
  Sender: FDA-Public Use
  Company Number: ES-ABBOTT-10P-144-0675787-00

PATIENT
  Age: 62 Year
  Sex: Female

DRUGS (4)
  1. HUMIRA [Suspect]
     Indication: PUSTULAR PSORIASIS
     Route: 058
     Dates: start: 20100706, end: 20100706
  2. HUMIRA [Suspect]
     Route: 058
     Dates: start: 20100713, end: 20100713
  3. HUMIRA [Suspect]
     Route: 058
     Dates: start: 20100701, end: 20100825
  4. CYCLOSPORINE [Suspect]
     Indication: PUSTULAR PSORIASIS
     Route: 048
     Dates: start: 20100309, end: 20100825

REACTIONS (8)
  - ANURIA [None]
  - ARTHRALGIA [None]
  - ASTHENIA [None]
  - DECREASED APPETITE [None]
  - HYPERCHROMIC ANAEMIA [None]
  - PYREXIA [None]
  - RENAL FAILURE [None]
  - SEPTIC SHOCK [None]
